FAERS Safety Report 12342870 (Version 2)
Quarter: 2016Q2

REPORT INFORMATION
  Report Type: Spontaneous
  Country: ES (occurrence: ES)
  Receive Date: 20160506
  Receipt Date: 20160606
  Transmission Date: 20160815
  Serious: Yes (Life-Threatening)
  Sender: FDA-Public Use
  Company Number: ES-IGSA-ES-AGEMED-305193335

PATIENT
  Age: 61 Year
  Sex: Female

DRUGS (10)
  1. BRONCHILATOR /00005001/ [Concomitant]
     Indication: PNEUMONIA PNEUMOCOCCAL
     Dates: start: 201403
  2. SERTRALINE [Concomitant]
     Active Substance: SERTRALINE HYDROCHLORIDE
     Dates: start: 20160419
  3. LEVOFLOXACINO [Concomitant]
     Active Substance: LEVOFLOXACIN
     Route: 042
     Dates: start: 20160409, end: 20160420
  4. VISIPAQUE [Concomitant]
     Active Substance: IODIXANOL
     Indication: COMPUTERISED TOMOGRAM
     Route: 042
     Dates: start: 20160420, end: 20160420
  5. BRONCHILATOR /00005001/ [Concomitant]
     Indication: PNEUMONIA STAPHYLOCOCCAL
     Dates: start: 201403
  6. MAGNESIO HIDROXIDO [Concomitant]
     Route: 048
     Dates: start: 20160401
  7. FLEBOGAMMA DIF [Suspect]
     Active Substance: HUMAN IMMUNOGLOBULIN G
     Indication: MUSCULAR WEAKNESS
     Dosage: 30GRAMOS
     Route: 042
     Dates: start: 20160420, end: 20160420
  8. OMEPRAZOLE. [Concomitant]
     Active Substance: OMEPRAZOLE
     Route: 048
     Dates: start: 20160419, end: 20160420
  9. PIPERACILINA + TAZOBACTAM [Concomitant]
     Active Substance: PIPERACILLIN SODIUM\TAZOBACTAM SODIUM
     Dates: start: 20160407, end: 20160420
  10. BEMIPARIN SODIUM [Concomitant]
     Active Substance: BEMIPARIN SODIUM
     Dates: start: 20160401

REACTIONS (7)
  - Cardio-respiratory arrest [Recovered/Resolved]
  - Cyanosis [Recovered/Resolved]
  - Arteriospasm coronary [Recovered/Resolved]
  - Myocardial infarction [Recovered/Resolved]
  - Electrocardiogram ST segment elevation [Recovered/Resolved]
  - Dyspnoea [Recovered/Resolved]
  - Loss of consciousness [Recovered/Resolved]

NARRATIVE: CASE EVENT DATE: 20160420
